FAERS Safety Report 7578975-1 (Version None)
Quarter: 2011Q2

REPORT INFORMATION
  Report Type: 
  Country: None (occurrence: None)
  Receive Date: 20110628
  Receipt Date: 20110616
  Transmission Date: 20111010
  Serious: Yes (Other)
  Sender: FDA-Public Use
  Company Number: CA-BAYER-2011-051903

PATIENT
  Sex: Female

DRUGS (1)
  1. CIPRO XR [Suspect]
     Indication: CYSTITIS
     Dosage: 1000 MG, BID
     Route: 048
     Dates: start: 20060101

REACTIONS (13)
  - TENDON RUPTURE [None]
  - RASH ERYTHEMATOUS [None]
  - PAIN [None]
  - GOUT [None]
  - PALPITATIONS [None]
  - RENAL DISORDER [None]
  - MUSCLE RUPTURE [None]
  - BACK DISORDER [None]
  - CARDIAC DISORDER [None]
  - BLOOD POTASSIUM ABNORMAL [None]
  - DIABETES MELLITUS [None]
  - UPPER EXTREMITY MASS [None]
  - PAIN IN EXTREMITY [None]
